FAERS Safety Report 7796790-0 (Version None)
Quarter: 2011Q4

REPORT INFORMATION
  Report Type: 
  Country: None (occurrence: None)
  Receive Date: 20111005
  Receipt Date: 20110928
  Transmission Date: 20120403
  Serious: Yes (Other)
  Sender: FDA-Public Use
  Company Number: US-JNJFOC-20101004631

PATIENT
  Sex: Female

DRUGS (2)
  1. LEVAQUIN [Suspect]
     Indication: CHRONIC SINUSITIS
     Route: 048
     Dates: start: 20050101, end: 20090110
  2. LEVAQUIN [Suspect]
     Indication: PRODUCT USED FOR UNKNOWN INDICATION
     Route: 048

REACTIONS (8)
  - ULNAR TUNNEL SYNDROME [None]
  - EXOSTOSIS [None]
  - TENDONITIS [None]
  - CARPAL TUNNEL SYNDROME [None]
  - INJURY [None]
  - OEDEMA PERIPHERAL [None]
  - DRUG EFFECT DECREASED [None]
  - PAIN IN EXTREMITY [None]
